FAERS Safety Report 24708618 (Version 2)
Quarter: 2025Q3

REPORT INFORMATION
  Report Type: Spontaneous
  Country: CA (occurrence: CA)
  Receive Date: 20241207
  Receipt Date: 20250802
  Transmission Date: 20251021
  Serious: Yes (Hospitalization, Other)
  Sender: ALEXION PHARMACEUTICALS
  Company Number: E2B_07385114

PATIENT
  Age: 57 Year
  Sex: Female
  Weight: 63 kg

DRUGS (3)
  1. SYMBICORT [Suspect]
     Active Substance: BUDESONIDE\FORMOTEROL FUMARATE DIHYDRATE
     Route: 065
  2. PREDNISONE [Suspect]
     Active Substance: PREDNISONE
     Route: 065
  3. ALBUTEROL SULFATE [Suspect]
     Active Substance: ALBUTEROL SULFATE
     Indication: Product used for unknown indication
     Route: 065

REACTIONS (11)
  - Allergic reaction to excipient [Recovered/Resolved]
  - Cough [Recovered/Resolved]
  - Dyspnoea [Recovered/Resolved]
  - Fall [Recovered/Resolved]
  - Loss of consciousness [Recovered/Resolved]
  - Malaise [Recovered/Resolved]
  - Pharyngeal swelling [Recovered/Resolved]
  - Pneumonitis [Recovered/Resolved]
  - Rib fracture [Recovered/Resolved]
  - Tongue disorder [Recovered/Resolved]
  - Wheezing [Recovered/Resolved]
